FAERS Safety Report 10196841 (Version 1)
Quarter: 2014Q2

REPORT INFORMATION
  Report Type: Spontaneous
  Country: CH (occurrence: CH)
  Receive Date: 20140527
  Receipt Date: 20140527
  Transmission Date: 20141212
  Serious: Yes (Hospitalization)
  Sender: FDA-Public Use
  Company Number: CH-BAYER-2014-075431

PATIENT
  Age: 79 Year
  Sex: Male
  Weight: 72 kg

DRUGS (10)
  1. XARELTO [Suspect]
     Indication: ATRIAL FIBRILLATION
     Dosage: 20 MG, QD
     Route: 048
     Dates: start: 20131202, end: 20140318
  2. XARELTO [Interacting]
     Indication: THROMBOSIS PROPHYLAXIS
  3. XARELTO [Interacting]
     Indication: CEREBROVASCULAR ACCIDENT PROPHYLAXIS
  4. ASPIRIN CARDIO [Interacting]
     Indication: ATRIAL FIBRILLATION
     Dosage: 100 MG, QD
     Route: 048
     Dates: start: 20131202, end: 20140318
  5. ASPIRIN CARDIO [Interacting]
     Indication: THROMBOSIS PROPHYLAXIS
  6. ASPIRIN CARDIO [Interacting]
     Indication: CEREBROVASCULAR ACCIDENT PROPHYLAXIS
  7. BLOPRESS PLUS [Concomitant]
  8. GALVUS [Concomitant]
  9. METOPROLOL [Concomitant]
  10. CRESTOR [Concomitant]

REACTIONS (3)
  - Cerebral haemorrhage [Recovering/Resolving]
  - Convulsion [Recovering/Resolving]
  - Anaemia [Recovering/Resolving]
